FAERS Safety Report 8780306 (Version 1)
Quarter: 2012Q4

REPORT INFORMATION
  Report Type: 
  Country: US (occurrence: None)
  Receive Date: 20120830
  Receipt Date: 20120830
  Transmission Date: 20130627
  Serious: Yes (Death, Other)
  Sender: FDA-Public Use
  Company Number: TPA2012A03387

PATIENT
  Age: 71 Year
  Sex: Male

DRUGS (4)
  1. ACTOS (PIOGLITAZONE HYDROCHLORIDE) [Suspect]
     Indication: TYPE 2 DIABETES MELLITUS
     Dates: start: 200810, end: 20110617
  2. METFORMIN (METFORMIN) [Concomitant]
  3. DIABETA (GLIBENCLAMIDE) [Concomitant]
  4. JANUVIA (SITAGLIPTIN PHOSPHATE) [Concomitant]

REACTIONS (4)
  - Bladder cancer [None]
  - Hydronephrosis [None]
  - Nephrolithiasis [None]
  - Calculus bladder [None]
